FAERS Safety Report 20462494 (Version 4)
Quarter: 2022Q1

REPORT INFORMATION
  Report Type: Report from Study
  Country: US (occurrence: US)
  Receive Date: 20220211
  Receipt Date: 20220316
  Transmission Date: 20220423
  Serious: Yes (Other)
  Sender: FDA-Public Use
  Company Number: US-NOVARTISTESTPH-NVSC2022US030197

PATIENT
  Sex: Female

DRUGS (1)
  1. ENTRESTO [Suspect]
     Active Substance: SACUBITRIL\VALSARTAN
     Indication: Product used for unknown indication
     Dosage: UNK UNK, BID (100 MG)
     Route: 065
     Dates: start: 20220131

REACTIONS (10)
  - Atrial fibrillation [Recovering/Resolving]
  - COVID-19 [Unknown]
  - Epistaxis [Unknown]
  - Weight increased [Unknown]
  - Nasal dryness [Unknown]
  - Cough [Recovering/Resolving]
  - Dry eye [Unknown]
  - Feeling hot [Unknown]
  - Fatigue [Unknown]
  - Hypotension [Unknown]
